FAERS Safety Report 5893702-1 (Version None)
Quarter: 2008Q3

REPORT INFORMATION
  Report Type: 
  Country: None (occurrence: None)
  Receive Date: 20080918
  Receipt Date: 20080908
  Transmission Date: 20090109
  Serious: Yes (Other)
  Sender: FDA-Public Use
  Company Number: 2008AP002319

PATIENT
  Age: 40 Year
  Sex: Female

DRUGS (6)
  1. PAROXETINE HCL [Suspect]
     Dosage: 20 MG 0.5 TAB; QD, 20 MG; QD, 0.5 TAB; QIW, 1 TAB; TIW
     Dates: start: 20021202
  2. CITALOPRAM HYDROBROMIDE [Concomitant]
  3. FLUOXETINE HCL [Concomitant]
  4. DIAZEPAM [Concomitant]
  5. FLUPENTIXOL (FLUPENTIXOL) [Concomitant]
  6. IMIPRAMINE [Concomitant]

REACTIONS (15)
  - AGITATION [None]
  - AGORAPHOBIA [None]
  - CONFUSIONAL STATE [None]
  - DIZZINESS [None]
  - DRUG WITHDRAWAL SYNDROME [None]
  - FATIGUE [None]
  - LETHARGY [None]
  - NAUSEA [None]
  - NIGHTMARE [None]
  - PANIC ATTACK [None]
  - PARANOIA [None]
  - SUICIDAL IDEATION [None]
  - SUICIDE ATTEMPT [None]
  - TREMOR [None]
  - VERTIGO [None]
